FAERS Safety Report 6672832-0 (Version None)
Quarter: 2010Q2

REPORT INFORMATION
  Report Type: 
  Country: None (occurrence: None)
  Receive Date: 20100408
  Receipt Date: 20100324
  Transmission Date: 20101027
  Serious: Yes (Other)
  Sender: FDA-Public Use
  Company Number: PHHY2010US18489

PATIENT
  Sex: Female

DRUGS (4)
  1. EXFORGE HCT [Suspect]
     Indication: HYPERTENSION
     Dosage: 320/10/25 MG; QD
     Route: 048
     Dates: start: 20100210, end: 20100322
  2. FOSAMAX [Concomitant]
     Dosage: 70 MG, UNK
  3. AMBIEN [Concomitant]
     Dosage: 10 MG, UNK
  4. PRILOSEC [Concomitant]
     Dosage: 20 MG, UNK

REACTIONS (4)
  - ACTIVITIES OF DAILY LIVING IMPAIRED [None]
  - FATIGUE [None]
  - HEADACHE [None]
  - PALPITATIONS [None]
